FAERS Safety Report 5378092-5 (Version None)
Quarter: 2007Q3

REPORT INFORMATION
  Report Type: 
  Country: None (occurrence: None)
  Receive Date: 20070702
  Receipt Date: 20070702
  Transmission Date: 20080115
  Serious: Yes (Hospitalization)
  Sender: FDA-Public Use
  Company Number: None

PATIENT
  Age: 79 Year
  Sex: Male
  Weight: 66 kg

DRUGS (12)
  1. WARFARIN SODIUM [Suspect]
     Indication: ATRIAL FIBRILLATION
     Dosage: 2.5MG PO QO DAY
     Route: 048
     Dates: start: 20070104
  2. CLONIDINE [Concomitant]
  3. DIGOXIN [Concomitant]
  4. LASIX [Concomitant]
  5. K-DUR 10 [Concomitant]
  6. LISINOPRIL [Concomitant]
  7. ALLOPURINOL [Concomitant]
  8. VERAPAMIL [Concomitant]
  9. AMBIEN [Concomitant]
  10. DOXAZOSIN MESYLATE [Concomitant]
  11. LIPITOR [Concomitant]
  12. TRICOR [Concomitant]

REACTIONS (1)
  - MALLORY-WEISS SYNDROME [None]
